FAERS Safety Report 8188388-X (Version None)
Quarter: 2012Q1

REPORT INFORMATION
  Report Type: 
  Country: None (occurrence: None)
  Receive Date: 20120306
  Receipt Date: 20120223
  Transmission Date: 20120608
  Serious: Yes (Other)
  Sender: FDA-Public Use
  Company Number: PHHY2012IT018823

PATIENT
  Age: 86 Year
  Sex: Female

DRUGS (1)
  1. EXELON [Suspect]
     Dosage: 9.5 MG/24H
     Route: 062

REACTIONS (3)
  - PSYCHOMOTOR HYPERACTIVITY [None]
  - HALLUCINATION [None]
  - DELIRIUM [None]
